FAERS Safety Report 16290117 (Version 1)
Quarter: 2019Q2

REPORT INFORMATION
  Report Type: Spontaneous
  Country: CA (occurrence: CA)
  Receive Date: 20190509
  Receipt Date: 20190509
  Transmission Date: 20190711
  Serious: Yes (Death)
  Sender: FDA-Public Use
  Company Number: CA-BAYER-2019-087625

PATIENT
  Age: 52 Year
  Sex: Male

DRUGS (12)
  1. QUETIAPINE. [Concomitant]
     Active Substance: QUETIAPINE
  2. TRAZODONE [Concomitant]
     Active Substance: TRAZODONE HYDROCHLORIDE
  3. LORAZEPAM. [Concomitant]
     Active Substance: LORAZEPAM
  4. VANCOMYCIN [Suspect]
     Active Substance: VANCOMYCIN
     Indication: BURSITIS
     Dosage: 1.0 G, BID
     Route: 042
  5. DEXILANT [Concomitant]
     Active Substance: DEXLANSOPRAZOLE
  6. CEFTRIAXONE SODIUM. [Suspect]
     Active Substance: CEFTRIAXONE SODIUM
     Indication: PRODUCT USED FOR UNKNOWN INDICATION
     Dosage: 2.0 G, QD
     Route: 042
  7. ACETAMINOPHEN;CAFFEINE [Concomitant]
     Active Substance: ACETAMINOPHEN\CAFFEINE
  8. PREGABALIN. [Concomitant]
     Active Substance: PREGABALIN
  9. NICOTINE. [Concomitant]
     Active Substance: NICOTINE
     Indication: PRODUCT USED FOR UNKNOWN INDICATION
  10. ALEVE [Suspect]
     Active Substance: NAPROXEN SODIUM
     Indication: PRODUCT USED FOR UNKNOWN INDICATION
     Dosage: 2 DF, QD
     Route: 048
  11. HALOPERIDOL. [Concomitant]
     Active Substance: HALOPERIDOL
  12. MORPHINE [Concomitant]
     Active Substance: MORPHINE

REACTIONS (2)
  - Blood creatinine increased [Fatal]
  - Death [Fatal]
